FAERS Safety Report 5733185-5 (Version None)
Quarter: 2008Q2

REPORT INFORMATION
  Report Type: 
  Country: None (occurrence: None)
  Receive Date: 20080507
  Receipt Date: 20080422
  Transmission Date: 20081010
  Serious: Yes (Hospitalization)
  Sender: FDA-Public Use
  Company Number: TNZFR200800073

PATIENT
  Age: 84 Year
  Sex: Male

DRUGS (1)
  1. INNOHEP [Suspect]
     Dosage: (DAILY), SUBCUTANEOUS
     Route: 058
     Dates: start: 20080318

REACTIONS (4)
  - CARDIO-RESPIRATORY ARREST [None]
  - CONDITION AGGRAVATED [None]
  - HAEMATURIA [None]
  - HAEMORRHAGIC ANAEMIA [None]
